FAERS Safety Report 15855541 (Version 1)
Quarter: 2019Q1

REPORT INFORMATION
  Report Type: Spontaneous
  Country: FR (occurrence: FR)
  Receive Date: 20190122
  Receipt Date: 20190122
  Transmission Date: 20190417
  Serious: Yes (Hospitalization)
  Sender: FDA-Public Use
  Company Number: FR-009507513-1901FRA006518

PATIENT
  Age: 76 Year
  Sex: Male
  Weight: 55 kg

DRUGS (12)
  1. UROMITEXAN [Concomitant]
     Active Substance: MESNA
     Indication: BLADDER IRRITATION
     Route: 041
     Dates: start: 20180910, end: 20181025
  2. ONDANSETRON [Suspect]
     Active Substance: ONDANSETRON
     Indication: PROPHYLAXIS OF NAUSEA AND VOMITING
     Dosage: DAY 1 DAY 5 OF EACH RITUXIMAB, CYCLOPHOSPHAMIDE, DOXORUBICIN (HYDROXYDAUNOMYCIN), VINCRISTINE (ONCOV
     Route: 048
     Dates: start: 20180910, end: 20181030
  3. ACETAMINOPHEN. [Suspect]
     Active Substance: ACETAMINOPHEN
     Indication: PAIN
     Dosage: UNKNOWN
     Route: 048
     Dates: end: 20181025
  4. WELLVONE [Concomitant]
     Active Substance: ATOVAQUONE
     Indication: ANTIFUNGAL PROPHYLAXIS
     Dosage: 1500MG, QD
     Route: 048
     Dates: start: 20180919
  5. ENDOXAN [Suspect]
     Active Substance: CYCLOPHOSPHAMIDE
     Indication: DIFFUSE LARGE B-CELL LYMPHOMA STAGE IV
     Dosage: 1260 MG, Q3W;3 CYCLES RITUXIMAB, CYCLOPHOSPHAMIDE, DOXORUBICIN (HYDROXYDAUNOMYCIN), VINCRISTINE (ONC
     Route: 041
     Dates: start: 20180910, end: 20181025
  6. VINCRISTINE TEVA [Suspect]
     Active Substance: VINCRISTINE
     Indication: DIFFUSE LARGE B-CELL LYMPHOMA STAGE IV
     Dosage: 3 CYCLES RITUXIMAB, CYCLOPHOSPHAMIDE, DOXORUBICIN (HYDROXYDAUNOMYCIN), VINCRISTINE (ONCOVIN), PREDNI
     Route: 041
     Dates: start: 20180910, end: 20181025
  7. VALACYCLOVIR HYDROCHLORIDE. [Concomitant]
     Active Substance: VALACYCLOVIR HYDROCHLORIDE
     Indication: ANTIVIRAL PROPHYLAXIS
     Dosage: 1000 MG, QD
     Route: 048
     Dates: start: 20180919
  8. EMEND [Suspect]
     Active Substance: APREPITANT
     Indication: PROPHYLAXIS OF NAUSEA AND VOMITING
     Dosage: DAY 1 DAY 3 OF EACH RITUXIMAB, CYCLOPHOSPHAMIDE, DOXORUBICIN (HYDROXYDAUNOMYCIN), VINCRISTINE (ONCOV
     Route: 048
     Dates: start: 20180910, end: 20181027
  9. DOXORUBICIN TEVA [Suspect]
     Active Substance: DOXORUBICIN
     Indication: DIFFUSE LARGE B-CELL LYMPHOMA STAGE IV
     Dosage: 3 CYCLES RITUXIMAB, CYCLOPHOSPHAMIDE, DOXORUBICIN (HYDROXYDAUNOMYCIN), VINCRISTINE (ONCOVIN), PREDNI
     Route: 041
     Dates: start: 20180910, end: 20181025
  10. PREDNISONE. [Concomitant]
     Active Substance: PREDNISONE
     Indication: DIFFUSE LARGE B-CELL LYMPHOMA STAGE IV
     Dosage: DAY 2-DAY 5 OF EACH RITUXIMAB, CYCLOPHOSPHAMIDE, DOXORUBICIN (HYDROXYDAUNOMYCIN), VINCRISTINE (ONCOV
     Route: 048
     Dates: start: 20180910, end: 20181030
  11. METHOTREXATE. [Concomitant]
     Active Substance: METHOTREXATE
     Indication: DIFFUSE LARGE B-CELL LYMPHOMA STAGE IV
     Dosage: 15 MILLIGRAM, Q3W
     Route: 037
     Dates: start: 20181002, end: 20181025
  12. MABTHERA [Concomitant]
     Active Substance: RITUXIMAB
     Indication: DIFFUSE LARGE B-CELL LYMPHOMA STAGE IV
     Dosage: 1400 MILLIGRAM, Q3W; 3 CYCLES OF EACH RITUXIMAB, CYCLOPHOSPHAMIDE, DOXORUBICIN (HYDROXYDAUNOMYCIN),
     Route: 058
     Dates: start: 20180910, end: 20181025

REACTIONS (1)
  - Fixed eruption [Recovered/Resolved]

NARRATIVE: CASE EVENT DATE: 20181027
